FAERS Safety Report 19494678 (Version 1)
Quarter: 2021Q3

REPORT INFORMATION
  Report Type: Spontaneous
  Country: MX (occurrence: MX)
  Receive Date: 20210706
  Receipt Date: 20210706
  Transmission Date: 20211014
  Serious: Yes (Other)
  Sender: FDA-Public Use
  Company Number: MX-JNJFOC-20210709963

PATIENT
  Age: 91 Year
  Sex: Female
  Weight: 62 kg

DRUGS (1)
  1. RIVAROXABAN [Suspect]
     Active Substance: RIVAROXABAN
     Indication: PRODUCT USED FOR UNKNOWN INDICATION
     Dosage: 2.5 MG, QD
     Route: 048
     Dates: start: 20201125

REACTIONS (2)
  - Off label use [Unknown]
  - Arterial insufficiency [Unknown]

NARRATIVE: CASE EVENT DATE: 20210318
